FAERS Safety Report 10025784 (Version 1)
Quarter: 2014Q1

REPORT INFORMATION
  Report Type: Spontaneous
  Country: IT (occurrence: None)
  Receive Date: 20140314
  Receipt Date: 20140314
  Transmission Date: 20141002
  Serious: Yes (Hospitalization)
  Sender: FDA-Public Use
  Company Number: FK201400790

PATIENT
  Age: 72 Year
  Sex: Female

DRUGS (4)
  1. IRINOTECAN [Suspect]
     Indication: COLON CANCER METASTATIC
     Dosage: 240 MG, CYCLICAL, INTRAVENSOUS (NOT OTHERWISE SPECIFIED)
     Route: 042
     Dates: start: 20130910, end: 20140121
  2. FLUOROURACIL (FLUOROURACIL) [Concomitant]
  3. FLUOROURACIL TEVA (FLUOROURACIL) [Concomitant]
  4. AVASTIN 9BEVACIZUMAB) [Concomitant]

REACTIONS (1)
  - Pancytopenia [None]
